FAERS Safety Report 24313473 (Version 2)
Quarter: 2024Q4

REPORT INFORMATION
  Report Type: Spontaneous
  Country: IN (occurrence: IN)
  Receive Date: 20240912
  Receipt Date: 20241014
  Transmission Date: 20250115
  Serious: Yes (Other)
  Sender: Haleon PLC
  Company Number: IN-HALEON-2195966

PATIENT
  Age: 51 Year

DRUGS (1)
  1. OTRIVIN [Suspect]
     Active Substance: XYLOMETAZOLINE
     Indication: Dyspnoea
     Dosage: I USE IT REGULARLY

REACTIONS (2)
  - Drug dependence [Unknown]
  - Product use issue [Unknown]
